FAERS Safety Report 7776914-1 (Version None)
Quarter: 2011Q3

REPORT INFORMATION
  Report Type: 
  Country: None (occurrence: None)
  Receive Date: 20110926
  Receipt Date: 20110915
  Transmission Date: 20111222
  Serious: Yes (Hospitalization)
  Sender: FDA-Public Use
  Company Number: US-ASTELLAS-2011US005903

PATIENT
  Sex: Female
  Weight: 430 kg

DRUGS (2)
  1. ERLOTINIB HYDROCHLORIDE [Suspect]
     Indication: LUNG NEOPLASM MALIGNANT
     Dosage: 100 MG, CYCLIC
     Route: 048
  2. PEMETREXED [Suspect]
     Indication: LUNG NEOPLASM MALIGNANT
     Dosage: 735 Q3W
     Route: 042

REACTIONS (4)
  - DYSPHAGIA [None]
  - CELLULITIS [None]
  - DECREASED APPETITE [None]
  - OEDEMA PERIPHERAL [None]
